FAERS Safety Report 21423897 (Version 1)
Quarter: 2022Q4

REPORT INFORMATION
  Report Type: Spontaneous
  Country: NL (occurrence: NL)
  Receive Date: 20221007
  Receipt Date: 20221007
  Transmission Date: 20230113
  Serious: Yes (Hospitalization)
  Sender: FDA-Public Use
  Company Number: None

PATIENT
  Sex: Male
  Weight: 140 kg

DRUGS (6)
  1. OXYCODONE [Suspect]
     Active Substance: OXYCODONE
     Indication: Arthralgia
     Dosage: 2X A DAY IN THE BEGINNING AND LATER LESS , FORM STRENGTH :   5MG / BRAND NAME NOT SPECIFIED , UNIT
     Dates: start: 20220318, end: 20220731
  2. METOPROLOL TARTRATE [Concomitant]
     Active Substance: METOPROLOL TARTRATE
     Indication: Product used for unknown indication
     Dosage: METOPROLOL TARTRAAT/ BRAND NAME NOT SPECIFIED , THERAPY START DATE AND END DATE : ASKU
  3. LOSARTAN POTASSIUM PCH [Concomitant]
     Indication: Product used for unknown indication
     Dosage: LOSARTAN TABLET FO 25MG / FORM STRENGTH : 25 MG , THERAPY START DATE AND END DATE : ASKU
  4. ALLOPURINOL [Concomitant]
     Active Substance: ALLOPURINOL
     Indication: Product used for unknown indication
     Dosage: FORM STRENGTH : 10MG / BRAND NAME NOT SPECIFIED , THERAPY START DATE AND END DATE : ASKU
  5. AMLODIPINE BESYLATE [Concomitant]
     Active Substance: AMLODIPINE BESYLATE
     Indication: Product used for unknown indication
     Dosage: AMLODIPINE BESILAAT / BRAND NAME NOT SPECIFIED , THERAPY START DATE AND END DATE : ASKU
  6. ROSUVASTATIN [Concomitant]
     Active Substance: ROSUVASTATIN
     Indication: Product used for unknown indication
     Dosage: FORM STRENGTH :  5MG / BRAND NAME NOT SPECIFIED  , THERAPY START DATE AND END DATE : ASKU

REACTIONS (1)
  - Pulmonary embolism [Recovered/Resolved]
